FAERS Safety Report 6831654-8 (Version None)
Quarter: 2010Q3

REPORT INFORMATION
  Report Type: 
  Country: None (occurrence: None)
  Receive Date: 20100712
  Receipt Date: 20100707
  Transmission Date: 20110219
  Serious: Yes (Other)
  Sender: FDA-Public Use
  Company Number: US-SANOFI-AVENTIS-2010SA035498

PATIENT
  Age: 66 Year
  Sex: Male
  Weight: 100.45 kg

DRUGS (4)
  1. MULTAQ [Suspect]
     Indication: ATRIAL FIBRILLATION
     Route: 048
     Dates: start: 20100406, end: 20100617
  2. COUMADIN [Concomitant]
     Indication: ATRIAL FIBRILLATION
  3. CRESTOR [Concomitant]
  4. METOPROLOL [Concomitant]
     Dates: start: 20100216, end: 20100420

REACTIONS (2)
  - ATRIAL FIBRILLATION [None]
  - HEADACHE [None]
